FAERS Safety Report 9248615 (Version 2)
Quarter: 2014Q1

REPORT INFORMATION
  Report Type: Spontaneous
  Country: US (occurrence: US)
  Receive Date: 20130423
  Receipt Date: 20140312
  Transmission Date: 20141002
  Serious: Yes (Hospitalization)
  Sender: FDA-Public Use
  Company Number: US-ASTRAZENECA-2006UW11069

PATIENT
  Age: 73 Year
  Sex: Male
  Weight: 83.5 kg

DRUGS (17)
  1. CRESTOR [Suspect]
     Indication: BLOOD CHOLESTEROL ABNORMAL
     Route: 048
     Dates: start: 2005, end: 2005
  2. CRESTOR [Suspect]
     Indication: BLOOD TRIGLYCERIDES INCREASED
     Route: 048
     Dates: start: 2005, end: 2005
  3. CRESTOR [Suspect]
     Indication: BLOOD CHOLESTEROL ABNORMAL
     Route: 048
     Dates: start: 2005, end: 201206
  4. CRESTOR [Suspect]
     Indication: BLOOD TRIGLYCERIDES INCREASED
     Route: 048
     Dates: start: 2005, end: 201206
  5. CRESTOR [Suspect]
     Indication: BLOOD CHOLESTEROL ABNORMAL
     Route: 048
     Dates: start: 2002, end: 2002
  6. CRESTOR [Suspect]
     Indication: BLOOD TRIGLYCERIDES INCREASED
     Route: 048
     Dates: start: 2002, end: 2002
  7. CRESTOR [Suspect]
     Indication: BLOOD CHOLESTEROL ABNORMAL
     Route: 048
     Dates: start: 2002, end: 201206
  8. CRESTOR [Suspect]
     Indication: BLOOD TRIGLYCERIDES INCREASED
     Route: 048
     Dates: start: 2002, end: 201206
  9. CRESTOR [Suspect]
     Indication: BLOOD CHOLESTEROL ABNORMAL
     Route: 048
     Dates: start: 2013
  10. CRESTOR [Suspect]
     Indication: BLOOD TRIGLYCERIDES INCREASED
     Route: 048
     Dates: start: 2013
  11. OMEGA 3 [Concomitant]
  12. VITAMINS E C B COMPLEX [Concomitant]
  13. CENTRUM [Concomitant]
  14. ALLOPURINOL [Concomitant]
     Indication: GOUT
     Dates: start: 2002
  15. LIPITOR [Concomitant]
  16. LIPITOR [Concomitant]
     Dates: start: 201211, end: 20130410
  17. LIPITOR [Concomitant]
     Dosage: GENERIC

REACTIONS (10)
  - Myocardial infarction [Unknown]
  - Joint swelling [Unknown]
  - Drug effect increased [Unknown]
  - Nephrolithiasis [Unknown]
  - Gout [Unknown]
  - Pain in extremity [Unknown]
  - Blood glucose increased [Recovered/Resolved]
  - Glycosylated haemoglobin increased [Unknown]
  - Therapeutic response decreased [Not Recovered/Not Resolved]
  - Intentional drug misuse [Unknown]
